FAERS Safety Report 10592660 (Version 1)
Quarter: 2014Q4

REPORT INFORMATION
  Report Type: Spontaneous
  Country: CH (occurrence: CH)
  Receive Date: 20141119
  Receipt Date: 20141119
  Transmission Date: 20150529
  Serious: Yes (Hospitalization)
  Sender: FDA-Public Use
  Company Number: CH-JNJFOC-20141107015

PATIENT
  Age: 89 Year
  Sex: Female

DRUGS (13)
  1. ASPIRIN CARDIO [Suspect]
     Active Substance: ASPIRIN
     Indication: CORONARY ARTERY DISEASE
     Route: 048
     Dates: end: 201405
  2. XARELTO [Suspect]
     Active Substance: RIVAROXABAN
     Indication: THROMBOSIS PROPHYLAXIS
     Route: 048
     Dates: start: 201404, end: 20140515
  3. PANTOZOL [Concomitant]
     Active Substance: PANTOPRAZOLE SODIUM
     Route: 065
  4. LAXOBERON [Concomitant]
     Active Substance: SODIUM PICOSULFATE
     Route: 065
  5. LANTUS [Concomitant]
     Active Substance: INSULIN GLARGINE
     Route: 065
  6. TOREM [Concomitant]
     Active Substance: TORSEMIDE
     Route: 065
  7. XARELTO [Suspect]
     Active Substance: RIVAROXABAN
     Indication: VENOUS THROMBOSIS
     Route: 048
     Dates: start: 20140307, end: 20140327
  8. XARELTO [Suspect]
     Active Substance: RIVAROXABAN
     Indication: VENOUS THROMBOSIS
     Route: 048
     Dates: start: 201404, end: 20140515
  9. HUMALOG [Concomitant]
     Active Substance: INSULIN LISPRO
     Route: 065
  10. LYRICA [Concomitant]
     Active Substance: PREGABALIN
     Route: 065
  11. XARELTO [Suspect]
     Active Substance: RIVAROXABAN
     Indication: THROMBOSIS PROPHYLAXIS
     Route: 048
     Dates: start: 20140307, end: 20140327
  12. DAFALGAN [Concomitant]
     Active Substance: ACETAMINOPHEN
     Route: 065
  13. DIOVAN [Concomitant]
     Active Substance: VALSARTAN
     Route: 065

REACTIONS (5)
  - Haemorrhagic anaemia [Recovering/Resolving]
  - Drug prescribing error [Recovered/Resolved]
  - Iron deficiency anaemia [Recovered/Resolved]
  - Melaena [Recovered/Resolved]
  - Gastrointestinal haemorrhage [Unknown]

NARRATIVE: CASE EVENT DATE: 20140327
